FAERS Safety Report 13871896 (Version 1)
Quarter: 2017Q3

REPORT INFORMATION
  Report Type: Spontaneous
  Country: GB (occurrence: GB)
  Receive Date: 20170816
  Receipt Date: 20170816
  Transmission Date: 20171127
  Serious: Yes (Other)
  Sender: FDA-Public Use
  Company Number: GB-SUN PHARMACEUTICAL INDUSTRIES LTD-2017RR-147668

PATIENT
  Age: 30 Year
  Sex: Female
  Weight: 118.38 kg

DRUGS (1)
  1. SERTRALINE [Suspect]
     Active Substance: SERTRALINE HYDROCHLORIDE
     Indication: DEPRESSION
     Dosage: 25MG UPTO 200MG.
     Route: 048
     Dates: start: 20160401, end: 20170201

REACTIONS (1)
  - Gambling disorder [Recovered/Resolved]

NARRATIVE: CASE EVENT DATE: 20160501
